FAERS Safety Report 7965134-3 (Version None)
Quarter: 2011Q4

REPORT INFORMATION
  Report Type: 
  Country: None (occurrence: None)
  Receive Date: 20111208
  Receipt Date: 20111030
  Transmission Date: 20120403
  Serious: No
  Sender: FDA-Public Use
  Company Number: US-BAYER-2011-106634

PATIENT

DRUGS (3)
  1. ALEVE (CAPLET) [Suspect]
     Dosage: 4 TABLETS ONCE
     Route: 048
  2. 1 KIND OF PILL [Concomitant]
     Dosage: 1 TABLET
     Route: 048
  3. ACETAMINOPHEN [Concomitant]
     Dosage: 3 TABLET
     Route: 048

REACTIONS (1)
  - NO ADVERSE EVENT [None]
